FAERS Safety Report 11429806 (Version 1)
Quarter: 2015Q3

REPORT INFORMATION
  Report Type: Spontaneous
  Country: US (occurrence: US)
  Receive Date: 20150828
  Receipt Date: 20150828
  Transmission Date: 20151125
  Serious: No
  Sender: FDA-Public Use
  Company Number: US-ROCHE-1184830

PATIENT
  Sex: Male

DRUGS (6)
  1. VICTRELIS [Suspect]
     Active Substance: BOCEPREVIR
     Route: 065
     Dates: start: 20130124
  2. VICTRELIS [Suspect]
     Active Substance: BOCEPREVIR
     Indication: PRODUCT USED FOR UNKNOWN INDICATION
     Route: 065
     Dates: start: 201206
  3. PEGASYS [Suspect]
     Active Substance: PEGINTERFERON ALFA-2A
     Route: 058
     Dates: start: 20130124
  4. RIBAVIRIN. [Suspect]
     Active Substance: RIBAVIRIN
     Route: 065
     Dates: start: 20130124
  5. PEGASYS [Suspect]
     Active Substance: PEGINTERFERON ALFA-2A
     Indication: PRODUCT USED FOR UNKNOWN INDICATION
     Route: 065
     Dates: start: 201206
  6. RIBAVIRIN. [Suspect]
     Active Substance: RIBAVIRIN
     Indication: PRODUCT USED FOR UNKNOWN INDICATION
     Route: 065
     Dates: start: 201206

REACTIONS (1)
  - Drug dose omission [Unknown]
